FAERS Safety Report 17251549 (Version 1)
Quarter: 2020Q1

REPORT INFORMATION
  Report Type: Spontaneous
  Country: MX (occurrence: MX)
  Receive Date: 20200109
  Receipt Date: 20200109
  Transmission Date: 20200409
  Serious: Yes (Hospitalization, Other)
  Sender: FDA-Public Use
  Company Number: MX-PFIZER INC-2020007063

PATIENT
  Age: 38 Year
  Sex: Male

DRUGS (3)
  1. CELEBREX [Suspect]
     Active Substance: CELECOXIB
     Indication: OROPHARYNGEAL PAIN
     Dosage: 200 MG, UNK
     Dates: start: 20191218
  2. CELEBREX [Suspect]
     Active Substance: CELECOXIB
     Indication: COUGH
  3. CELEBREX [Suspect]
     Active Substance: CELECOXIB
     Indication: MALAISE
     Dosage: 1 DF, UNK
     Dates: start: 201911

REACTIONS (7)
  - Poisoning [Unknown]
  - Eye swelling [Unknown]
  - Pruritus [Unknown]
  - Product use in unapproved indication [Unknown]
  - Dyspnoea [Unknown]
  - Ocular hyperaemia [Unknown]
  - Off label use [Unknown]

NARRATIVE: CASE EVENT DATE: 2019
